FAERS Safety Report 5802229-4 (Version None)
Quarter: 2008Q3

REPORT INFORMATION
  Report Type: 
  Country: None (occurrence: None)
  Receive Date: 20080707
  Receipt Date: 20080626
  Transmission Date: 20090109
  Serious: Yes (Other)
  Sender: FDA-Public Use
  Company Number: CH-JNJFOC-20080606639

PATIENT
  Age: 42 Year
  Sex: Male

DRUGS (3)
  1. REMICADE [Suspect]
     Indication: CROHN'S DISEASE
     Dosage: 2ND INFUSION
     Route: 042
  2. CORTISONE [Concomitant]
     Indication: PREMEDICATION
  3. TAVEGYL [Concomitant]
     Indication: PREMEDICATION

REACTIONS (4)
  - DYSPNOEA [None]
  - INFUSION RELATED REACTION [None]
  - PHARMACEUTICAL PRODUCT COMPLAINT [None]
  - RASH PUSTULAR [None]
